FAERS Safety Report 5130850-8 (Version None)
Quarter: 2006Q4

REPORT INFORMATION
  Report Type: 
  Country: None (occurrence: None)
  Receive Date: 20061013
  Receipt Date: 20061004
  Transmission Date: 20070319
  Serious: Yes (Hospitalization, Other)
  Sender: FDA-Public Use
  Company Number: 163-20785-06100225

PATIENT
  Age: 67 Year
  Sex: Male

DRUGS (21)
  1. THALOMID [Suspect]
     Indication: MULTIPLE MYELOMA
     Dosage: 50 MG-200 MG, DAILY, ORAL
     Route: 048
     Dates: start: 20010802, end: 20050101
  2. PREDNISONE TAB [Suspect]
     Indication: MULTIPLE MYELOMA
     Dosage: 20 MG, EVERY OTHER DAY, UNK
  3. DECADRON [Suspect]
     Indication: MULTIPLE MYELOMA
  4. CYTOXAN [Suspect]
     Indication: MULTIPLE MYELOMA
     Dosage: WEEKLY, SEE IMAGE
     Dates: end: 20030901
  5. CYTOXAN [Suspect]
     Indication: MULTIPLE MYELOMA
     Dosage: WEEKLY, SEE IMAGE
     Dates: start: 20031001
  6. CARDIZEM CD [Concomitant]
  7. BACTRIM DS [Concomitant]
  8. COLACE (DOCUSATE SODIUM) [Concomitant]
  9. ZOLOFT [Concomitant]
  10. FOLIC ACID [Concomitant]
  11. VITAMIN E [Concomitant]
  12. VITAMIN C (ASCORBIC ACID) (TABLETS) [Concomitant]
  13. ZOMETA [Concomitant]
  14. KLONOPIN [Concomitant]
  15. PRILOSEC [Concomitant]
  16. ATENOLOL [Concomitant]
  17. SENOKOT (SENNA FRUIT) (TABLETS) [Concomitant]
  18. AMARYL [Concomitant]
  19. ASPIRIN [Concomitant]
  20. DIFLUCAN [Concomitant]
  21. HUMALOG [Concomitant]

REACTIONS (8)
  - COMPRESSION FRACTURE [None]
  - DIARRHOEA [None]
  - DISEASE PROGRESSION [None]
  - HERPES ZOSTER [None]
  - HYPOGAMMAGLOBULINAEMIA [None]
  - INTERVERTEBRAL DISC PROTRUSION [None]
  - PNEUMONIA [None]
  - UPPER RESPIRATORY TRACT INFECTION [None]
